FAERS Safety Report 13278663 (Version 1)
Quarter: 2017Q1

REPORT INFORMATION
  Report Type: Spontaneous
  Country: TR (occurrence: TR)
  Receive Date: 20170228
  Receipt Date: 20170228
  Transmission Date: 20170428
  Serious: Yes (Life-Threatening, Hospitalization, Other)
  Sender: FDA-Public Use
  Company Number: TR-BAUSCH-BL-2017-005042

PATIENT
  Age: 3 Year
  Sex: Female

DRUGS (2)
  1. THEOPHYLLINE [Suspect]
     Active Substance: THEOPHYLLINE ANHYDROUS
     Indication: PRODUCT USED FOR UNKNOWN INDICATION
     Route: 065
  2. INDAPAMIDE. [Suspect]
     Active Substance: INDAPAMIDE
     Indication: PRODUCT USED FOR UNKNOWN INDICATION
     Route: 065

REACTIONS (17)
  - Status epilepticus [Recovered/Resolved with Sequelae]
  - Liver function test abnormal [Recovering/Resolving]
  - Vomiting [Unknown]
  - Accidental exposure to product by child [Unknown]
  - Respiratory failure [Unknown]
  - Acute kidney injury [Recovering/Resolving]
  - Polyuria [Unknown]
  - Tachycardia [Recovered/Resolved]
  - Cerebral hypoperfusion [Unknown]
  - Hypotension [Recovered/Resolved with Sequelae]
  - Hypoglycaemia [Recovering/Resolving]
  - Pyrexia [Recovered/Resolved]
  - Nervous system disorder [Not Recovered/Not Resolved]
  - Brain oedema [Unknown]
  - Toxicity to various agents [Recovered/Resolved with Sequelae]
  - Dehydration [Unknown]
  - Cerebral ischaemia [Unknown]
